FAERS Safety Report 6724528-4 (Version None)
Quarter: 2010Q2

REPORT INFORMATION
  Report Type: 
  Country: None (occurrence: None)
  Receive Date: 20100513
  Receipt Date: 20100504
  Transmission Date: 20101027
  Serious: Yes (Other)
  Sender: FDA-Public Use
  Company Number: CN-PFIZER INC-2010056358

PATIENT

DRUGS (2)
  1. ZYVOX [Suspect]
     Dosage: UNK
  2. MEROPENEM [Suspect]
     Dosage: UNK

REACTIONS (1)
  - RENAL IMPAIRMENT [None]
